FAERS Safety Report 15806724 (Version 1)
Quarter: 2019Q1

REPORT INFORMATION
  Report Type: Spontaneous
  Country: US (occurrence: US)
  Receive Date: 20190110
  Receipt Date: 20190110
  Transmission Date: 20190417
  Serious: No
  Sender: FDA-Public Use
  Company Number: US-PFIZER INC-2019009635

PATIENT
  Age: 49 Year
  Sex: Male
  Weight: 76 kg

DRUGS (1)
  1. SUTENT [Suspect]
     Active Substance: SUNITINIB MALATE
     Indication: GASTROINTESTINAL CANCER METASTATIC
     Dosage: 37.5 MG, 1X/DAY
     Route: 048
     Dates: start: 20181224, end: 201812

REACTIONS (2)
  - Insomnia [Unknown]
  - Back pain [Recovered/Resolved]

NARRATIVE: CASE EVENT DATE: 20181224
